FAERS Safety Report 6652538-4 (Version None)
Quarter: 2010Q1

REPORT INFORMATION
  Report Type: 
  Country: None (occurrence: None)
  Receive Date: 20100325
  Receipt Date: 20100325
  Transmission Date: 20100710
  Serious: Yes (Hospitalization)
  Sender: FDA-Public Use
  Company Number: None

PATIENT
  Sex: Male
  Weight: 94 kg

DRUGS (6)
  1. ABRAXANE [Suspect]
     Indication: PANCREATIC CARCINOMA
     Dosage: 209 MG D1, D8, D15/CYCLE 042
     Dates: start: 20100312, end: 20100312
  2. VANDETANIB [Suspect]
     Indication: PANCREATIC CARCINOMA
     Dosage: 300 MG QD X 28 DAYS 047
     Dates: start: 20100312, end: 20100314
  3. DARVOCET [Concomitant]
  4. AMBIEN [Concomitant]
  5. DILAUDID [Concomitant]
  6. FENTANYL-75 [Concomitant]

REACTIONS (1)
  - ABDOMINAL PAIN [None]
